FAERS Safety Report 9324520 (Version 2)
Quarter: 2013Q2

REPORT INFORMATION
  Report Type: Report from Study
  Country: JP (occurrence: JP)
  Receive Date: 20130603
  Receipt Date: 20130627
  Transmission Date: 20140414
  Serious: Yes (Hospitalization)
  Sender: FDA-Public Use
  Company Number: JP-PFIZER INC-2013162412

PATIENT
  Age: 54 Year
  Sex: Male
  Weight: 104 kg

DRUGS (25)
  1. SUNITINIB MALATE [Suspect]
     Indication: RENAL CELL CARCINOMA
     Dosage: 50 MG, 1X/DAY
     Route: 048
     Dates: start: 20090603, end: 20090623
  2. SUNITINIB MALATE [Suspect]
     Dosage: 25 MG, 1X/DAY
     Route: 048
     Dates: start: 20090624, end: 20090630
  3. SUNITINIB MALATE [Suspect]
     Dosage: 25 MG, 1X/DAY
     Route: 048
     Dates: start: 20090715, end: 20090812
  4. SUNITINIB MALATE [Suspect]
     Dosage: 50 MG, 1X/DAY
     Route: 048
     Dates: start: 20090826, end: 20090922
  5. SUNITINIB MALATE [Suspect]
     Dosage: 37.5 MG, 1X/DAY
     Route: 048
     Dates: start: 20091008, end: 20091117
  6. SUNITINIB MALATE [Suspect]
     Dosage: 50 MG, 1X/DAY
     Route: 048
     Dates: start: 20091118, end: 20091201
  7. SUNITINIB MALATE [Suspect]
     Dosage: 37.5 MG, 1X/DAY
     Route: 048
     Dates: start: 20091202, end: 20091216
  8. SUNITINIB MALATE [Suspect]
     Dosage: 50 MG, 1X/DAY
     Dates: start: 20100103, end: 20100114
  9. SUNITINIB MALATE [Suspect]
     Dosage: 37.5 MG, 1X/DAY
     Dates: start: 20100115, end: 20100129
  10. SUNITINIB MALATE [Suspect]
     Dosage: 37.5 MG, 1X/DAY
     Route: 048
     Dates: start: 20100213, end: 20100308
  11. SUNITINIB MALATE [Suspect]
     Dosage: 37.5 MG, 1X/DAY
     Dates: start: 20100327, end: 20100412
  12. SUNITINIB MALATE [Suspect]
     Dosage: 25 MG, 1X/DAY
     Route: 048
     Dates: start: 20100413, end: 20100422
  13. SUNITINIB MALATE [Suspect]
     Dosage: 37.5 MG, 1X/DAY
     Dates: start: 20100508, end: 20100524
  14. SUNITINIB MALATE [Suspect]
     Dosage: 25 MG, 1X/DAY
     Route: 048
     Dates: start: 20100525, end: 20100527
  15. SUNITINIB MALATE [Suspect]
     Dosage: 37.5 MG, 1X/DAY
     Dates: start: 20100705
  16. ZYLORIC [Concomitant]
     Dosage: 100 MG, 3X/DAY
     Route: 048
  17. BUFFERIN [Concomitant]
     Dosage: 81 MG, 1X/DAY
     Route: 048
  18. ACTOS [Concomitant]
     Dosage: 30 MG, 1X/DAY
     Route: 048
  19. MEXITIL [Concomitant]
     Dosage: 100 MG, 3X/DAY
     Route: 048
  20. MEPTIN [Concomitant]
     Dosage: 20 UG, AS NEEDED
     Route: 055
  21. TRUSOPT [Concomitant]
     Dosage: OPTIMAL DOSE, 3X/DAY
     Route: 047
  22. TIMOPTOL [Concomitant]
     Dosage: OPTIMAL DOSE, 1X/DAY
     Route: 047
  23. DETANTOL [Concomitant]
     Dosage: OPTIMAL DOSE, 2X/DAY
     Route: 047
  24. THYRADIN-S [Concomitant]
     Dosage: 25 UG, 1X/DAY
     Route: 048
     Dates: start: 20100305, end: 20100413
  25. THYRADIN-S [Concomitant]
     Dosage: 50 UG, 1X/DAY
     Route: 048
     Dates: start: 20100414, end: 20100518

REACTIONS (1)
  - Gastric ulcer [Recovered/Resolved]
